FAERS Safety Report 13249309 (Version 1)
Quarter: 2017Q1

REPORT INFORMATION
  Report Type: Spontaneous
  Country: US (occurrence: US)
  Receive Date: 20170218
  Receipt Date: 20170218
  Transmission Date: 20170428
  Serious: No
  Sender: FDA-Public Use
  Company Number: US-ALLERGAN-1676199US

PATIENT
  Sex: Female

DRUGS (3)
  1. RESTASIS [Suspect]
     Active Substance: CYCLOSPORINE
     Indication: DRY EYE
     Dosage: 2 GTT, UNK
     Route: 047
     Dates: start: 2008
  2. THERATEARS [Concomitant]
     Active Substance: CARBOXYMETHYLCELLULOSE SODIUM
     Indication: DRY EYE
     Dosage: UNK
     Route: 047
  3. CROMOLYN [Concomitant]
     Active Substance: CROMOLYN
     Indication: HYPERSENSITIVITY
     Route: 047

REACTIONS (5)
  - Epistaxis [Recovered/Resolved]
  - Conjunctivitis [Unknown]
  - Feeling abnormal [Not Recovered/Not Resolved]
  - Nasal dryness [Recovered/Resolved]
  - Drug interaction [Not Recovered/Not Resolved]
